FAERS Safety Report 20382722 (Version 1)
Quarter: 2022Q1

REPORT INFORMATION
  Report Type: Spontaneous
  Country: US (occurrence: None)
  Receive Date: 20220126
  Receipt Date: 20220126
  Transmission Date: 20220423
  Serious: Yes (Life-Threatening, Other)
  Sender: FDA-Public Use
  Company Number: None

PATIENT
  Age: 60 Year
  Sex: Female
  Weight: 52 kg

DRUGS (1)
  1. ACETYLCYSTEINE [Suspect]
     Active Substance: ACETYLCYSTEINE
     Indication: Liver injury
     Dosage: OTHER FREQUENCY : ONCE;?
     Route: 041
     Dates: start: 20211003, end: 20211003

REACTIONS (3)
  - Dyspnoea [None]
  - Respiratory distress [None]
  - Infusion related reaction [None]

NARRATIVE: CASE EVENT DATE: 20211003
